FAERS Safety Report 20770305 (Version 3)
Quarter: 2022Q2

REPORT INFORMATION
  Report Type: Spontaneous
  Country: SD (occurrence: SD)
  Receive Date: 20220429
  Receipt Date: 20220523
  Transmission Date: 20220721
  Serious: Yes (Other)
  Sender: FDA-Public Use
  Company Number: SD-GE HEALTHCARE-2022CSU002847

PATIENT
  Age: 34 Year
  Weight: 47 kg

DRUGS (3)
  1. OMNIPAQUE [Suspect]
     Active Substance: IOHEXOL
     Indication: Computerised tomogram thorax
     Dosage: 60 ML, SINGLE
     Route: 042
     Dates: start: 20220303, end: 20220303
  2. OMNIPAQUE [Suspect]
     Active Substance: IOHEXOL
     Indication: Computerised tomogram abdomen
  3. OMNIPAQUE [Suspect]
     Active Substance: IOHEXOL
     Indication: Ovarian cancer

REACTIONS (5)
  - Urinary incontinence [Recovered/Resolved]
  - Hypotension [Recovered/Resolved]
  - Tachycardia [Recovered/Resolved]
  - Confusional state [Recovered/Resolved]
  - Hyperhidrosis [Recovered/Resolved]

NARRATIVE: CASE EVENT DATE: 20220303
